FAERS Safety Report 24354842 (Version 1)
Quarter: 2024Q3

REPORT INFORMATION
  Report Type: Spontaneous
  Country: JP (occurrence: JP)
  Receive Date: 20240923
  Receipt Date: 20240923
  Transmission Date: 20241017
  Serious: No
  Sender: MERCK
  Company Number: JP-009507513-2409JPN005069

PATIENT
  Age: 81 Year
  Sex: Male

DRUGS (7)
  1. MOLNUPIRAVIR [Suspect]
     Active Substance: MOLNUPIRAVIR
     Indication: COVID-19
     Dosage: UNK
  2. RITUXIMAB [Concomitant]
     Active Substance: RITUXIMAB
     Indication: Extranodal marginal zone B-cell lymphoma (MALT type)
     Dosage: UNK
  3. BENDAMUSTINE;RITUXIMAB [Concomitant]
     Indication: Extranodal marginal zone B-cell lymphoma (MALT type)
     Dosage: UNK
  4. LENALIDOMIDE;RITUXIMAB [Concomitant]
     Indication: Extranodal marginal zone B-cell lymphoma (MALT type)
     Dosage: UNK
  5. REMDESIVIR [Concomitant]
     Active Substance: REMDESIVIR
     Indication: COVID-19
     Dosage: UNK
  6. ENSITRELVIR [Concomitant]
     Active Substance: ENSITRELVIR
     Indication: COVID-19
     Dosage: UNK
  7. CORTICOSTEROID NOS [Concomitant]
     Active Substance: CORTICOSTEROID NOS
     Dosage: UNK

REACTIONS (1)
  - Product use in unapproved indication [Unknown]
